FAERS Safety Report 18646882 (Version 1)
Quarter: 2020Q4

REPORT INFORMATION
  Report Type: Other
  Country: US (occurrence: US)
  Receive Date: 20201221
  Receipt Date: 20201221
  Transmission Date: 20210114
  Serious: No
  Sender: FDA-Public Use
  Company Number: US-ACORDA-ACO_167244_2020

PATIENT
  Sex: Male

DRUGS (2)
  1. INBRIJA [Suspect]
     Active Substance: LEVODOPA
     Indication: PARKINSON^S DISEASE
     Dosage: 84 MILLIGRAM, PRN (2 CAPS NOT TO EXCEED 5 TIMES DAILY AS NEEDED)
     Dates: start: 20201210
  2. INBRIJA [Suspect]
     Active Substance: LEVODOPA
     Indication: ON AND OFF PHENOMENON

REACTIONS (5)
  - Device difficult to use [Unknown]
  - Dry mouth [Unknown]
  - Lip dry [Unknown]
  - Therapeutic product effect variable [Unknown]
  - Cough [Unknown]
